FAERS Safety Report 24793469 (Version 1)
Quarter: 2024Q4

REPORT INFORMATION
  Report Type: Spontaneous
  Country: GB (occurrence: GB)
  Receive Date: 20241231
  Receipt Date: 20241231
  Transmission Date: 20250114
  Serious: Yes (Death, Other)
  Sender: MYLAN
  Company Number: GB-MYLANLABS-2024M1115585

PATIENT
  Age: 44 Year
  Sex: Female

DRUGS (1)
  1. TACROLIMUS [Suspect]
     Active Substance: TACROLIMUS
     Indication: Immunosuppressant drug therapy
     Dosage: UNK
     Route: 065

REACTIONS (5)
  - T-cell lymphoma [Fatal]
  - Central nervous system lymphoma [Fatal]
  - Neurotoxicity [Recovering/Resolving]
  - Encephalopathy [Recovering/Resolving]
  - Immunosuppressant drug level increased [Unknown]
